FAERS Safety Report 5480185-9 (Version None)
Quarter: 2007Q4

REPORT INFORMATION
  Report Type: 
  Country: None (occurrence: None)
  Receive Date: 20071009
  Receipt Date: 20070924
  Transmission Date: 20080405
  Serious: Yes (Hospitalization, Other)
  Sender: FDA-Public Use
  Company Number: US-ELI_LILLY_AND_COMPANY-US200709005270

PATIENT
  Age: 72 Year
  Sex: Female

DRUGS (4)
  1. EVISTA [Suspect]
     Indication: OSTEOPENIA
     Dosage: 60 MG, UNK
     Route: 048
  2. CALCIUM CARBONATE [Concomitant]
     Dosage: 1200 MG, DAILY (1/D)
  3. VITAMIN D [Concomitant]
     Dosage: 800 IU, UNK
  4. PAMIDRONATE DISODIUM [Concomitant]
     Route: 042

REACTIONS (4)
  - CYST [None]
  - FALL [None]
  - HIP FRACTURE [None]
  - OSTEONECROSIS [None]
